FAERS Safety Report 12158738 (Version 1)
Quarter: 2016Q1

REPORT INFORMATION
  Report Type: Spontaneous
  Country: US (occurrence: None)
  Receive Date: 20160307
  Receipt Date: 20160307
  Transmission Date: 20160526
  Serious: No
  Sender: FDA-Public Use
  Company Number: None

PATIENT
  Age: 58 Year
  Sex: Female
  Weight: 68.04 kg

DRUGS (9)
  1. CALCIUM + VIT D3 [Concomitant]
  2. PROLIA [Suspect]
     Active Substance: DENOSUMAB
     Indication: OSTEOPOROSIS POSTMENOPAUSAL
     Dosage: 1 INJECTION TWICE A YEAR (EVERY 6 MONTHS) INJECTION
     Dates: start: 20141125, end: 20150901
  3. PHENYTOIN (DILANTIN) [Concomitant]
  4. ANTIHISTAMINE [Concomitant]
     Active Substance: UNSPECIFIED INGREDIENT
  5. LOVASTATIN. [Concomitant]
     Active Substance: LOVASTATIN
  6. CLOBETASOL PROPIONATE .05% [Concomitant]
  7. GLUCOSAMINE SULFATE [Concomitant]
     Active Substance: GLUCOSAMINE SULFATE
  8. TYLENOL [Concomitant]
     Active Substance: ACETAMINOPHEN
  9. NEOSPORIN [Concomitant]
     Active Substance: BACITRACIN ZINC\NEOMYCIN SULFATE\POLYMYXIN B SULFATE

REACTIONS (8)
  - Skin cancer [None]
  - Pain in jaw [None]
  - Ear disorder [None]
  - Scab [None]
  - Rash papular [None]
  - Ear pruritus [None]
  - Pruritus [None]
  - Neoplasm recurrence [None]

NARRATIVE: CASE EVENT DATE: 201412
